FAERS Safety Report 21504075 (Version 1)
Quarter: 2022Q4

REPORT INFORMATION
  Report Type: Other
  Country: US (occurrence: None)
  Receive Date: 20221025
  Receipt Date: 20221025
  Transmission Date: 20230113
  Serious: No
  Sender: FDA-Public Use
  Company Number: US-ROCHE-3205745

PATIENT
  Age: 40 Year
  Sex: Female
  Weight: 70.370 kg

DRUGS (3)
  1. OCREVUS [Suspect]
     Active Substance: OCRELIZUMAB
     Indication: Relapsing-remitting multiple sclerosis
     Dosage: 300MG IV INFUSION DAY 1 AND DAY 15, 600MG IV INFUSION EVERY 6 MONTHS
     Route: 042
     Dates: start: 20170605
  2. ALLEGRA [Concomitant]
     Active Substance: FEXOFENADINE HYDROCHLORIDE
  3. BIRTH CONTROL (UNK INGREDIENTS) [Concomitant]

REACTIONS (7)
  - Menstruation irregular [Not Recovered/Not Resolved]
  - Hot flush [Not Recovered/Not Resolved]
  - Product dose omission issue [Unknown]
  - COVID-19 [Recovered/Resolved]
  - SARS-CoV-2 antibody test negative [Recovered/Resolved]
  - Body temperature increased [Not Recovered/Not Resolved]
  - Blood pressure decreased [Not Recovered/Not Resolved]

NARRATIVE: CASE EVENT DATE: 20170605
